FAERS Safety Report 5163526-1 (Version None)
Quarter: 2006Q4

REPORT INFORMATION
  Report Type: 
  Country: None (occurrence: None)
  Receive Date: 20061124
  Receipt Date: 20061113
  Transmission Date: 20070319
  Serious: Yes (Other)
  Sender: FDA-Public Use
  Company Number: 2006140958

PATIENT
  Age: 87 Year
  Sex: Male
  Weight: 99 kg

DRUGS (3)
  1. DIFLUCAN [Suspect]
     Indication: CANDIDIASIS
     Dates: start: 20061105, end: 20061108
  2. VFEND [Suspect]
     Indication: CANDIDIASIS
     Dosage: 800 MG (400 MG, 2 IN 1 D), INTRAVENOUS
     Route: 042
     Dates: start: 20061108
  3. DRUG, UNSPECIFIED [Concomitant]

REACTIONS (6)
  - BLOOD CREATININE INCREASED [None]
  - BLOOD CULTURE POSITIVE [None]
  - CANDIDIASIS [None]
  - HYPOTENSION [None]
  - SEPSIS [None]
  - WEIGHT INCREASED [None]
